FAERS Safety Report 13996902 (Version 1)
Quarter: 2017Q3

REPORT INFORMATION
  Report Type: Spontaneous
  Country: IT (occurrence: IT)
  Receive Date: 20170921
  Receipt Date: 20170921
  Transmission Date: 20171128
  Serious: Yes (Other)
  Sender: FDA-Public Use
  Company Number: IT-PFIZER INC-2017406213

PATIENT
  Age: 73 Year
  Sex: Male

DRUGS (9)
  1. AVODART [Concomitant]
     Active Substance: DUTASTERIDE
     Dosage: UNK
  2. XATRAL [Concomitant]
     Active Substance: ALFUZOSIN
     Dosage: UNK
  3. CARDIOASPIRIN [Suspect]
     Active Substance: ASPIRIN
     Indication: MITRAL VALVE REPLACEMENT
     Dosage: 100 MG, DAILY
     Route: 048
     Dates: start: 20140626, end: 20170814
  4. SUTENT [Suspect]
     Active Substance: SUNITINIB MALATE
     Indication: METASTATIC RENAL CELL CARCINOMA
     Dosage: 25 MG, DAILY
     Route: 048
     Dates: start: 20130408, end: 20170814
  5. SINVACOR [Concomitant]
     Active Substance: SIMVASTATIN
     Dosage: UNK
  6. EUTIROX [Concomitant]
     Active Substance: LEVOTHYROXINE SODIUM
     Dosage: 50 MG, UNK
     Route: 048
  7. CALCIO CARBONATO [Concomitant]
     Dosage: UNK
  8. BISOPROLOLO AUROBINDO [Concomitant]
     Dosage: UNK
  9. PANTORC [Concomitant]
     Active Substance: PANTOPRAZOLE SODIUM
     Dosage: UNK

REACTIONS (2)
  - Cerebral haemorrhage [Unknown]
  - Epilepsy [Recovering/Resolving]

NARRATIVE: CASE EVENT DATE: 20170814
